FAERS Safety Report 5216066-5 (Version None)
Quarter: 2007Q1

REPORT INFORMATION
  Report Type: 
  Country: None (occurrence: None)
  Receive Date: 20070123
  Receipt Date: 20061128
  Transmission Date: 20070707
  Serious: Yes (Death, Hospitalization, Other)
  Sender: FDA-Public Use
  Company Number: US-PFIZER INC-2006146417

PATIENT
  Sex: Female
  Weight: 55.3 kg

DRUGS (8)
  1. BEXTRA [Suspect]
     Route: 048
  2. DILANTIN [Suspect]
     Indication: HAEMORRHAGE
  3. ROCEPHIN [Suspect]
     Indication: URINARY TRACT INFECTION
     Route: 042
  4. LOPRESSOR [Concomitant]
  5. DECADRON [Concomitant]
  6. NORVASC [Concomitant]
  7. MAXZIDE [Concomitant]
  8. PEPCID [Concomitant]

REACTIONS (1)
  - TOXIC EPIDERMAL NECROLYSIS [None]
